FAERS Safety Report 22068241 (Version 1)
Quarter: 2023Q1

REPORT INFORMATION
  Report Type: Spontaneous
  Country: CA (occurrence: None)
  Receive Date: 20230307
  Receipt Date: 20230307
  Transmission Date: 20230417
  Serious: Yes (Other)
  Sender: FDA-Public Use
  Company Number: CA-PFIZER INC-202300089518

PATIENT
  Age: 23 Year
  Sex: Female

DRUGS (8)
  1. METHOTREXATE [Suspect]
     Active Substance: METHOTREXATE
     Indication: Product used for unknown indication
     Route: 065
  2. NIFEDIPINE [Concomitant]
     Active Substance: NIFEDIPINE
     Indication: Hypertension
     Route: 065
  3. AMLODIPINE BESYLATE\PERINDOPRIL ERBUMINE [Concomitant]
     Active Substance: AMLODIPINE BESYLATE\PERINDOPRIL ERBUMINE
     Indication: Hypertension
     Route: 065
  4. AZATHIOPRINE [Concomitant]
     Active Substance: AZATHIOPRINE
     Route: 065
     Dates: start: 202001, end: 202009
  5. CYCLOPHOSPHAMIDE [Concomitant]
     Active Substance: CYCLOPHOSPHAMIDE
     Dosage: HIGH DOSE
     Route: 065
     Dates: start: 202202, end: 202206
  6. BELIMUMAB [Concomitant]
     Active Substance: BELIMUMAB
     Route: 042
     Dates: start: 202207
  7. HYDROXYCHLOROQUINE SULFATE [Concomitant]
     Active Substance: HYDROXYCHLOROQUINE SULFATE
     Route: 065
     Dates: start: 2019
  8. CELLCEPT (MYCOPHENOLATE MOFETIL HYDROCHLORIDE) [Concomitant]
     Route: 065
     Dates: start: 202207, end: 202301

REACTIONS (8)
  - Neutropenia [Unknown]
  - Myocarditis [Unknown]
  - Forced expiratory volume decreased [Unknown]
  - Pulmonary arterial hypertension [Unknown]
  - Lupus nephritis [Unknown]
  - Lymphoproliferative disorder [Unknown]
  - Cytopenia [Unknown]
  - Loss of personal independence in daily activities [Unknown]
